FAERS Safety Report 5202021-8 (Version None)
Quarter: 2007Q1

REPORT INFORMATION
  Report Type: 
  Country: None (occurrence: None)
  Receive Date: 20070109
  Receipt Date: 20061228
  Transmission Date: 20070707
  Serious: Yes (Other)
  Sender: FDA-Public Use
  Company Number: DE-JNJFOC-20061203681

PATIENT
  Sex: Female
  Weight: 72 kg

DRUGS (1)
  1. RISPERDAL [Suspect]
     Indication: DRUG USE FOR UNKNOWN INDICATION
     Dosage: ABOUT 2 MONTHS AGO
     Route: 048

REACTIONS (3)
  - BASEDOW'S DISEASE [None]
  - HYPERTHYROIDISM [None]
  - TACHYCARDIA [None]
